FAERS Safety Report 9245920 (Version 1)
Quarter: 2013Q2

REPORT INFORMATION
  Report Type: Spontaneous
  Country: US (occurrence: US)
  Receive Date: 20130422
  Receipt Date: 20130422
  Transmission Date: 20140414
  Serious: Yes (Hospitalization, Other)
  Sender: FDA-Public Use
  Company Number: US-PFIZER INC-2013120768

PATIENT
  Age: 43 Year
  Sex: Male

DRUGS (5)
  1. EPINEPHRINE [Suspect]
     Indication: HYPERSENSITIVITY
     Dosage: 0.3 MG
     Route: 058
  2. AMOXICILLIN [Concomitant]
     Indication: PHARYNGITIS
     Dosage: UNK
     Route: 048
  3. DIPHENHYDRAMINE [Concomitant]
     Indication: RASH
     Dosage: UNK
     Route: 048
  4. DIPHENHYDRAMINE [Concomitant]
     Indication: PRURITUS
  5. METHYLPREDNISOLONE [Concomitant]
     Indication: HYPERSENSITIVITY
     Dosage: 125 MG, UNK
     Route: 042

REACTIONS (3)
  - Acute myocardial infarction [Recovered/Resolved]
  - Arteriospasm coronary [Recovered/Resolved]
  - Coronary artery thrombosis [Recovered/Resolved]
